FAERS Safety Report 7278326-6 (Version None)
Quarter: 2011Q1

REPORT INFORMATION
  Report Type: 
  Country: None (occurrence: None)
  Receive Date: 20110207
  Receipt Date: 20110119
  Transmission Date: 20110831
  Serious: No
  Sender: FDA-Public Use
  Company Number: US-B.I. PHARMACEUTICALS,INC./RIDGEFIELD-2011-BP-02032BP

PATIENT
  Sex: Male

DRUGS (2)
  1. PRADAXA [Suspect]
     Indication: ATRIAL FIBRILLATION
     Dosage: 300 MG
     Route: 048
     Dates: start: 20110101, end: 20110101
  2. PRADAXA [Suspect]
     Dosage: 75 MG
     Route: 048
     Dates: start: 20110119

REACTIONS (2)
  - HAEMORRHOIDAL HAEMORRHAGE [None]
  - BLOOD CREATININE INCREASED [None]
